FAERS Safety Report 5368879-7 (Version None)
Quarter: 2007Q2

REPORT INFORMATION
  Report Type: 
  Country: None (occurrence: None)
  Receive Date: 20070625
  Receipt Date: 20070124
  Transmission Date: 20071010
  Serious: No
  Sender: FDA-Public Use
  Company Number: US-ASTRAZENECA-2006UW18043

PATIENT
  Age: 57 Year
  Sex: Female
  Weight: 108.9 kg

DRUGS (3)
  1. CRESTOR [Suspect]
     Indication: BLOOD CHOLESTEROL INCREASED
     Route: 048
     Dates: start: 20060201, end: 20060401
  2. CRESTOR [Suspect]
     Route: 048
     Dates: start: 20060913
  3. ZOMIG [Concomitant]
     Indication: MIGRAINE

REACTIONS (2)
  - ARTHRALGIA [None]
  - CHONDRITIS [None]
